FAERS Safety Report 8031364-8 (Version None)
Quarter: 2012Q1

REPORT INFORMATION
  Report Type: 
  Country: None (occurrence: None)
  Receive Date: 20120109
  Receipt Date: 20111230
  Transmission Date: 20120608
  Serious: Yes (Death, Other)
  Sender: FDA-Public Use
  Company Number: US-PURDUE-USA-2011-0080362

PATIENT
  Age: 52 Year
  Sex: Male

DRUGS (6)
  1. OXYCONTIN [Suspect]
     Indication: NERVE INJURY
     Dosage: 205 MG, DAILY
     Dates: start: 20070301
  2. OXYCONTIN [Suspect]
     Dosage: 600 MG, DAILY
     Dates: start: 20080101
  3. OXYCODONE HCL [Suspect]
     Dosage: 600 MG, DAILY
     Dates: start: 20080101
  4. OXYCODONE HCL [Suspect]
     Indication: NERVE INJURY
     Dosage: 205 MG, DAILY
     Dates: start: 20070301
  5. MORPHINE [Suspect]
     Indication: BREAKTHROUGH PAIN
     Dosage: 1680 MG, DAILY
     Dates: start: 20080101
  6. FENTANYL [Suspect]
     Indication: BREAKTHROUGH PAIN
     Dosage: 100 MCG, Q72H
     Route: 062
     Dates: start: 20080101

REACTIONS (2)
  - CARDIAC FAILURE CONGESTIVE [None]
  - EJECTION FRACTION DECREASED [None]
